FAERS Safety Report 4599768-3 (Version None)
Quarter: 2005Q1

REPORT INFORMATION
  Report Type: 
  Country: None (occurrence: None)
  Receive Date: 20050303
  Receipt Date: 20050221
  Transmission Date: 20050727
  Serious: Yes (Hospitalization)
  Sender: FDA-Public Use
  Company Number: 2005034301

PATIENT
  Age: 21 Year
  Sex: Male
  Weight: 65.7716 kg

DRUGS (1)
  1. DRAMAMINE [Suspect]
     Dosage: 1 TAB ONCE, NASAL
     Route: 045
     Dates: start: 20050221, end: 20050221

REACTIONS (3)
  - DIZZINESS [None]
  - MALAISE [None]
  - MEDICATION ERROR [None]
